FAERS Safety Report 8902833 (Version 1)
Quarter: 2012Q4

REPORT INFORMATION
  Report Type: 
  Country: US (occurrence: US)
  Receive Date: 20121112
  Receipt Date: 20121112
  Transmission Date: 20130627
  Serious: Yes (Hospitalization)
  Sender: FDA-Public Use
  Company Number: US-JNJFOC-20121101489

PATIENT
  Age: 8 Year
  Sex: Male
  Weight: 35.38 kg

DRUGS (4)
  1. BENADRYL [Suspect]
     Indication: MULTIPLE ALLERGIES
     Dosage: 25 ml to 50 ml four times a week
     Route: 048
     Dates: start: 20041101
  2. BENADRYL [Suspect]
     Indication: MULTIPLE ALLERGIES
     Route: 048
  3. AN UNKNOWN MEDICATION [Concomitant]
     Indication: VITAMIN SUPPLEMENTATION
     Route: 065
     Dates: start: 20100111
  4. NASAL SPRAY UNSPECIFIED [Concomitant]
     Indication: NASAL OBSTRUCTION
     Route: 065
     Dates: start: 20100111

REACTIONS (7)
  - Suicidal ideation [Not Recovered/Not Resolved]
  - Hallucination [Not Recovered/Not Resolved]
  - Psychiatric symptom [Not Recovered/Not Resolved]
  - Mania [Not Recovered/Not Resolved]
  - Abdominal pain upper [Not Recovered/Not Resolved]
  - Constipation [Not Recovered/Not Resolved]
  - Headache [Not Recovered/Not Resolved]
